FAERS Safety Report 17360490 (Version 1)
Quarter: 2020Q1

REPORT INFORMATION
  Report Type: Spontaneous
  Country: US (occurrence: US)
  Receive Date: 20200131
  Receipt Date: 20200131
  Transmission Date: 20200409
  Serious: Yes (Death)
  Sender: FDA-Public Use
  Company Number: None

PATIENT
  Age: 59 Year
  Sex: Male
  Weight: 47.5 kg

DRUGS (1)
  1. HYDROMORPHONE [Suspect]
     Active Substance: HYDROMORPHONE
     Indication: CANCER PAIN
     Dosage: ?          OTHER FREQUENCY:Q4H PRN;?
     Route: 048

REACTIONS (5)
  - Pulseless electrical activity [None]
  - Respiration abnormal [None]
  - Abdominal pain [None]
  - Constipation [None]
  - Cardio-respiratory arrest [None]

NARRATIVE: CASE EVENT DATE: 20190713
